FAERS Safety Report 15232627 (Version 2)
Quarter: 2018Q3

REPORT INFORMATION
  Report Type: Report from Study
  Country: FR (occurrence: FR)
  Receive Date: 20180802
  Receipt Date: 20180911
  Transmission Date: 20181010
  Serious: Yes (Death, Other)
  Sender: FDA-Public Use
  Company Number: FR-MYLANLABS-2018M1056302

PATIENT
  Age: 62 Year
  Sex: Male

DRUGS (27)
  1. DICLOFENAC [Suspect]
     Active Substance: DICLOFENAC
     Dosage: 2 MG, QD
     Dates: start: 20160113, end: 20160304
  2. PROGRAF [Suspect]
     Active Substance: TACROLIMUS\TACROLIMUS ANHYDROUS
     Dosage: 1 MG, QD
     Dates: start: 20151008, end: 20151019
  3. PROGRAF [Suspect]
     Active Substance: TACROLIMUS\TACROLIMUS ANHYDROUS
     Dosage: 2 MG, QD
     Route: 065
     Dates: start: 20160323
  4. CERTICAN [Suspect]
     Active Substance: EVEROLIMUS
     Indication: PROPHYLAXIS AGAINST TRANSPLANT REJECTION
     Dosage: UNK
  5. CORTANCYL [Suspect]
     Active Substance: PREDNISONE
     Dosage: 40 MG, QD
     Route: 065
     Dates: start: 20151120
  6. MYFORTIC [Suspect]
     Active Substance: MYCOPHENOLATE SODIUM
     Indication: LIVER TRANSPLANT
     Dosage: 720 MG, QD
     Route: 065
     Dates: start: 20140111, end: 20140811
  7. MYFORTIC [Suspect]
     Active Substance: MYCOPHENOLATE SODIUM
     Indication: IMMUNOSUPPRESSANT DRUG THERAPY
     Dosage: 720 MG, QD
     Route: 065
     Dates: start: 20140905, end: 20150521
  8. DICLOFENAC [Suspect]
     Active Substance: DICLOFENAC
     Dosage: 6 MG, QD
     Route: 048
     Dates: start: 20140903, end: 20151119
  9. PROGRAF [Suspect]
     Active Substance: TACROLIMUS\TACROLIMUS ANHYDROUS
     Indication: IMMUNOSUPPRESSANT DRUG THERAPY
     Dosage: 10 MG, QD
     Route: 065
     Dates: start: 20140125, end: 20140831
  10. PROGRAF [Suspect]
     Active Substance: TACROLIMUS\TACROLIMUS ANHYDROUS
     Dosage: 2.5 MG, QD
     Route: 065
     Dates: start: 20160305, end: 20160322
  11. CERTICAN [Suspect]
     Active Substance: EVEROLIMUS
     Indication: LIVER TRANSPLANT
     Dosage: 1.5 MG, QD
     Route: 048
     Dates: start: 20151205, end: 20160112
  12. MERCAPTOPURINE. [Suspect]
     Active Substance: MERCAPTOPURINE
     Indication: PRODUCT USED FOR UNKNOWN INDICATION
     Dosage: 50 MG, QD
     Dates: start: 20150910
  13. IMUREL                             /00001501/ [Suspect]
     Active Substance: AZATHIOPRINE SODIUM
     Indication: IMMUNOSUPPRESSANT DRUG THERAPY
     Dosage: 100 MG, QD
     Route: 065
     Dates: start: 20150718, end: 20150906
  14. PROGRAF [Suspect]
     Active Substance: TACROLIMUS\TACROLIMUS ANHYDROUS
     Dosage: 4 MG, QD
     Route: 065
     Dates: start: 20151120, end: 20151204
  15. CERTICAN [Suspect]
     Active Substance: EVEROLIMUS
     Indication: IMMUNOSUPPRESSANT DRUG THERAPY
     Dosage: UNK
  16. MYFORTIC [Suspect]
     Active Substance: MYCOPHENOLATE SODIUM
     Indication: IMMUNOSUPPRESSANT DRUG THERAPY
     Dosage: 360 MG, QD
     Route: 065
     Dates: start: 20150522, end: 20150717
  17. PROGRAF [Suspect]
     Active Substance: TACROLIMUS\TACROLIMUS ANHYDROUS
     Indication: LIVER TRANSPLANT
     Dosage: 8 MG, QD
     Route: 065
     Dates: start: 20140901, end: 20140902
  18. CORTANCYL [Suspect]
     Active Substance: PREDNISONE
     Indication: IMMUNOSUPPRESSANT DRUG THERAPY
     Dosage: 5 MG, QD
     Route: 065
     Dates: start: 20140125, end: 20150428
  19. CORTANCYL [Suspect]
     Active Substance: PREDNISONE
     Dosage: 2.5 MG, QD
     Dates: start: 20150429, end: 20151119
  20. DICLOFENAC [Suspect]
     Active Substance: DICLOFENAC
     Indication: PRODUCT USED FOR UNKNOWN INDICATION
     Dosage: 8 MG, QD
     Dates: start: 20140901, end: 20140902
  21. PROGRAF [Suspect]
     Active Substance: TACROLIMUS\TACROLIMUS ANHYDROUS
     Dosage: 6 MG, QD
     Route: 065
     Dates: start: 20140903, end: 20151119
  22. DICLOFENAC [Suspect]
     Active Substance: DICLOFENAC
     Dosage: 2.5 MG, QD
     Dates: start: 20160305, end: 20160322
  23. DICLOFENAC [Suspect]
     Active Substance: DICLOFENAC
     Dosage: 2 MG, QD
     Dates: start: 20160323
  24. PROGRAF [Suspect]
     Active Substance: TACROLIMUS\TACROLIMUS ANHYDROUS
     Dosage: 2 MG, QD
     Route: 065
     Dates: start: 20160113, end: 20160304
  25. PROGRAF [Suspect]
     Active Substance: TACROLIMUS\TACROLIMUS ANHYDROUS
     Dosage: 6 MG, QD
     Route: 065
     Dates: start: 20151020, end: 20151119
  26. DICLOFENAC [Suspect]
     Active Substance: DICLOFENAC
     Dosage: 4 MG, QD
     Dates: start: 20151120, end: 20151204
  27. MYFORTIC [Suspect]
     Active Substance: MYCOPHENOLATE SODIUM
     Indication: LIVER TRANSPLANT

REACTIONS (5)
  - Diarrhoea [Fatal]
  - Weight decreased [Unknown]
  - Renal impairment [Fatal]
  - Back pain [Not Recovered/Not Resolved]
  - Chronic kidney disease [Fatal]

NARRATIVE: CASE EVENT DATE: 20150123
